FAERS Safety Report 24787301 (Version 1)
Quarter: 2024Q4

REPORT INFORMATION
  Report Type: Spontaneous
  Country: CN (occurrence: CN)
  Receive Date: 20241230
  Receipt Date: 20241230
  Transmission Date: 20250115
  Serious: Yes (Other)
  Sender: Teyro Labs
  Company Number: CN-TEYRO-2024-TY-000990

PATIENT
  Age: 59 Year
  Sex: Male

DRUGS (2)
  1. GEMCITABINE [Suspect]
     Active Substance: GEMCITABINE
     Indication: Cholangiocarcinoma
     Dosage: 1000 MG/M2  FOR 30 MINUTES ON DAYS 1 AND 8
     Route: 042
     Dates: start: 202112
  2. CAPECITABINE [Suspect]
     Active Substance: CAPECITABINE
     Indication: Cholangiocarcinoma
     Dosage: 1250 MG/M2  TWICE DAILY EVERY 3 WEEKS FROM DAY 1 TO DAY 14
     Route: 065
     Dates: start: 202112

REACTIONS (2)
  - Neoplasm recurrence [Unknown]
  - Off label use [Unknown]
